FAERS Safety Report 14566940 (Version 1)
Quarter: 2018Q1

REPORT INFORMATION
  Report Type: Spontaneous
  Country: US (occurrence: US)
  Receive Date: 20180223
  Receipt Date: 20180223
  Transmission Date: 20180509
  Serious: No
  Sender: FDA-Public Use
  Company Number: US-BRISTOL-MYERS SQUIBB COMPANY-BMS-2018-014847

PATIENT
  Sex: Female
  Weight: 56.69 kg

DRUGS (1)
  1. KENALOG-10 [Suspect]
     Active Substance: TRIAMCINOLONE ACETONIDE
     Indication: NECROSIS
     Dosage: .2 CC^S
     Route: 065
     Dates: start: 20171031, end: 20180206

REACTIONS (4)
  - Product quality issue [Unknown]
  - Mass [Unknown]
  - Skin depigmentation [Unknown]
  - Skin discolouration [Unknown]
